FAERS Safety Report 5009640-2 (Version None)
Quarter: 2006Q2

REPORT INFORMATION
  Report Type: 
  Country: None (occurrence: None)
  Receive Date: 20060524
  Receipt Date: 20060427
  Transmission Date: 20061013
  Serious: Yes (Other)
  Sender: FDA-Public Use
  Company Number: NL-GLAXOSMITHKLINE-B0422711A

PATIENT
  Age: 59 Year
  Sex: Male
  Weight: 60 kg

DRUGS (8)
  1. FLUTICASONE PROPIONATE + SALMETEROL XINAFOATE [Suspect]
     Indication: CHRONIC OBSTRUCTIVE PULMONARY DISEASE
     Route: 055
     Dates: start: 20050121
  2. SPIRIVA [Concomitant]
     Dosage: 18MCG UNKNOWN
     Route: 055
     Dates: start: 20050121
  3. ACETYLCYSTEINE [Concomitant]
     Dosage: 600MG UNKNOWN
     Route: 065
     Dates: start: 20050121
  4. SELOKEEN ZOC [Concomitant]
     Dosage: 50MG UNKNOWN
     Route: 065
     Dates: start: 20040107
  5. RENITEC [Concomitant]
     Dosage: 20MG UNKNOWN
     Route: 065
     Dates: start: 20040203
  6. CLARITIN [Concomitant]
     Dosage: 5MG UNKNOWN
     Route: 065
     Dates: start: 19920101
  7. AERIUS [Concomitant]
     Dosage: 5MG UNKNOWN
     Route: 065
     Dates: start: 19920101
  8. XANAX [Concomitant]
     Dosage: .25MG UNKNOWN
     Route: 065
     Dates: start: 19950501

REACTIONS (4)
  - PRURITUS [None]
  - SCRATCH [None]
  - SKIN ATROPHY [None]
  - SKIN HAEMORRHAGE [None]
